FAERS Safety Report 16524476 (Version 4)
Quarter: 2019Q3

REPORT INFORMATION
  Report Type: Spontaneous
  Country: CO (occurrence: CO)
  Receive Date: 20190703
  Receipt Date: 20190913
  Transmission Date: 20191004
  Serious: Yes (Death, Hospitalization, Other)
  Sender: FDA-Public Use
  Company Number: CO-AUROBINDO-AUR-APL-2019-038868

PATIENT

DRUGS (2)
  1. PRALATREXATE INJECTION [Suspect]
     Active Substance: PRALATREXATE
     Dosage: 30 MILLIGRAM, DAILY
     Route: 042
     Dates: start: 20180815, end: 20181213
  2. PRALATREXATE INJECTION [Suspect]
     Active Substance: PRALATREXATE
     Indication: PERIPHERAL T-CELL LYMPHOMA UNSPECIFIED
     Dosage: 54 MILLIGRAM, DAILY
     Route: 042
     Dates: start: 20180815, end: 20190411

REACTIONS (2)
  - Stomatitis [Unknown]
  - Tuberculosis [Fatal]

NARRATIVE: CASE EVENT DATE: 20181220
